FAERS Safety Report 24533680 (Version 1)
Quarter: 2024Q4

REPORT INFORMATION
  Report Type: Spontaneous
  Country: US (occurrence: None)
  Receive Date: 20241020
  Receipt Date: 20241020
  Transmission Date: 20250114
  Serious: No
  Sender: Public
  Company Number: None

PATIENT
  Age: 48 Year
  Sex: Female
  Weight: 58.5 kg

DRUGS (8)
  1. SUN BUM BROAD SPECTRUM SPF 30 [Suspect]
     Active Substance: AVOBENZONE\HOMOSALATE\OCTISALATE\OCTOCRYLENE
     Indication: Lip dry
     Dosage: OTHER QUANTITY : 4.25 STICK OF LIP BALM;?
     Route: 061
     Dates: start: 20241016, end: 20241016
  2. Birth control [Concomitant]
  3. Vitamin D [Concomitant]
  4. Probiotic [Concomitant]
  5. KRILL OIL [Concomitant]
  6. MSM [Concomitant]
  7. MAGNESIUM [Concomitant]
  8. COLLAGEN [Concomitant]
     Active Substance: COLLAGEN

REACTIONS (1)
  - Application site burn [None]

NARRATIVE: CASE EVENT DATE: 20241016
